FAERS Safety Report 6524688-4 (Version None)
Quarter: 2009Q4

REPORT INFORMATION
  Report Type: 
  Country: None (occurrence: None)
  Receive Date: 20091222
  Receipt Date: 20091216
  Transmission Date: 20100525
  Serious: Yes (Other)
  Sender: FDA-Public Use
  Company Number: JHP200900467

PATIENT
  Age: 78 Year
  Sex: Male

DRUGS (2)
  1. EPINEPHRINE [Suspect]
     Indication: ANGIOEDEMA
     Dosage: 0.5 MG, INTRAMUSCULAR
     Route: 030
  2. ASPIRIN [Concomitant]

REACTIONS (8)
  - ANGINA PECTORIS [None]
  - BLOOD PRESSURE INCREASED [None]
  - ELECTROCARDIOGRAM ST SEGMENT ELEVATION [None]
  - HYPERHIDROSIS [None]
  - NAUSEA [None]
  - PALLOR [None]
  - SINUS TACHYCARDIA [None]
  - THROMBOSIS IN DEVICE [None]
